FAERS Safety Report 10090513 (Version 2)
Quarter: 2014Q3

REPORT INFORMATION
  Report Type: Spontaneous
  Country: US (occurrence: None)
  Receive Date: 20140417
  Receipt Date: 20140807
  Transmission Date: 20150326
  Serious: Yes (Hospitalization)
  Sender: FDA-Public Use
  Company Number: UTC-046146

PATIENT
  Age: 66 Year
  Sex: Female
  Weight: 54.9 kg

DRUGS (4)
  1. REMODULIN [Suspect]
     Active Substance: TREPROSTINIL
     Indication: PULMONARY ARTERIAL HYPERTENSION
     Route: 041
     Dates: start: 201310
  2. WARFARIN SODIUM. [Concomitant]
     Active Substance: WARFARIN SODIUM
  3. REVATIO (SILDENIL) [Concomitant]
  4. REMODULIN [Suspect]
     Active Substance: TREPROSTINIL
     Indication: COR PULMONALE CHRONIC
     Route: 041
     Dates: start: 201310

REACTIONS (4)
  - Hypoxia [None]
  - Respiratory failure [None]
  - Neuropathy peripheral [None]
  - Atypical pneumonia [None]

NARRATIVE: CASE EVENT DATE: 20140222
